FAERS Safety Report 9443909 (Version 1)
Quarter: 2013Q3

REPORT INFORMATION
  Report Type: Report from Study
  Country: GB (occurrence: GB)
  Receive Date: 20130807
  Receipt Date: 20130807
  Transmission Date: 20140515
  Serious: Yes (Hospitalization)
  Sender: FDA-Public Use
  Company Number: GB-ROCHE-683355

PATIENT
  Age: 66 Year
  Sex: Male
  Weight: 113 kg

DRUGS (14)
  1. METHYLPREDNISOLONE [Suspect]
     Indication: PRODUCT USED FOR UNKNOWN INDICATION
     Route: 065
     Dates: start: 20100128, end: 20100128
  2. FOLIC ACID [Concomitant]
     Route: 065
  3. CORACTEN [Concomitant]
     Route: 065
  4. LISINOPRIL [Concomitant]
     Route: 065
  5. ATENOLOL [Concomitant]
     Route: 065
  6. SIMVASTATIN [Concomitant]
     Route: 065
  7. LANTUS [Concomitant]
     Dosage: TOTAL DAILY DOSE 102 UNITS
     Route: 065
  8. NOVORAPID [Concomitant]
     Dosage: TOTAL DAILY DOSE 20 UNITS, DRUG NAME REPORTED NOVARAPID FLEXPEN.
     Route: 065
  9. NOVORAPID [Concomitant]
     Dosage: TOTAL DAILY DOSE 8 UNITS, DRUG NAME REPORTED AS NOVORAPID FLEXPEN.
     Route: 065
  10. PARACETAMOL [Concomitant]
     Route: 065
     Dates: start: 20100128, end: 20100128
  11. PIRITON [Concomitant]
     Route: 065
     Dates: start: 20100128, end: 20100128
  12. METHOTREXATE [Concomitant]
     Indication: RHEUMATOID ARTHRITIS
     Route: 042
     Dates: start: 20060407
  13. METFORMIN [Concomitant]
     Route: 065
     Dates: start: 1990
  14. RITUXIMAB [Suspect]
     Indication: RHEUMATOID ARTHRITIS
     Dosage: LAST DOSE PRIOR TO SAE 28 JANUARY 2010, TEMPORARILY INTERRUPTED
     Route: 042

REACTIONS (1)
  - Coronary artery disease [Recovered/Resolved with Sequelae]
